FAERS Safety Report 8212869-3 (Version None)
Quarter: 2012Q1

REPORT INFORMATION
  Report Type: 
  Country: None (occurrence: None)
  Receive Date: 20120315
  Receipt Date: 20120313
  Transmission Date: 20120608
  Serious: Yes (Other)
  Sender: FDA-Public Use
  Company Number: US-PFIZER INC-2012066777

PATIENT
  Sex: Female
  Weight: 68.03 kg

DRUGS (5)
  1. LYRICA [Suspect]
     Dosage: 75 MG, 1X/DAY
     Route: 048
  2. LYRICA [Suspect]
     Indication: FIBROMYALGIA
     Dosage: 50 MG, 1X/DAY
     Route: 048
     Dates: start: 20100101
  3. RESTORIL [Concomitant]
     Dosage: 30 MG, 1X/DAY
  4. MOTRIN [Concomitant]
     Dosage: 600 MG
  5. LYRICA [Suspect]
     Dosage: 75 MG, 2X/DAY
     Route: 048

REACTIONS (2)
  - PAIN [None]
  - SPINAL OSTEOARTHRITIS [None]
